FAERS Safety Report 8817014 (Version 1)
Quarter: 2012Q4

REPORT INFORMATION
  Report Type: Spontaneous
  Country: US (occurrence: None)
  Receive Date: 20121002
  Receipt Date: 20121002
  Transmission Date: 20130627
  Serious: Yes (Other)
  Sender: FDA-Public Use
  Company Number: None

PATIENT
  Sex: Female
  Weight: 70.45 kg

DRUGS (1)
  1. ZOLPIDEM [Suspect]
     Dosage: 5mg to 10mg; PRN; PO(047)
     Route: 048
     Dates: start: 20120805, end: 20120918

REACTIONS (1)
  - Alopecia [None]
